FAERS Safety Report 9700819 (Version 2)
Quarter: 2013Q4

REPORT INFORMATION
  Report Type: Spontaneous
  Country: US (occurrence: US)
  Receive Date: 20131121
  Receipt Date: 20131227
  Transmission Date: 20140711
  Serious: Yes (Other)
  Sender: FDA-Public Use
  Company Number: US-AMGEN-USASP2013081551

PATIENT
  Sex: Female
  Weight: 79.37 kg

DRUGS (7)
  1. PROLIA [Suspect]
     Indication: OSTEOPOROSIS POSTMENOPAUSAL
     Dosage: 60 MG, Q6MO
     Route: 058
     Dates: start: 20121023, end: 20131105
  2. TRAMADOL [Concomitant]
     Indication: ARTHRITIS
     Dosage: UNK UNK, Q6H
     Route: 048
  3. SKELAXIN                           /00611501/ [Concomitant]
     Indication: BACK PAIN
     Dosage: UNK UNK, QHS
     Route: 048
  4. COUMADIN                           /00014802/ [Concomitant]
     Dosage: 4 MG, QD
     Route: 048
  5. LISINOPRIL HCTZ [Concomitant]
     Indication: HYPERTENSION
     Dosage: 20-25MG, QD
     Route: 048
  6. OMEPRAZOLE [Concomitant]
     Indication: GASTROOESOPHAGEAL REFLUX DISEASE
     Dosage: 20 MG, QD
     Route: 048
  7. PREDNISONE [Concomitant]

REACTIONS (2)
  - Spinal fracture [Unknown]
  - Osteoporotic fracture [Recovered/Resolved]
